FAERS Safety Report 15424778 (Version 1)
Quarter: 2018Q3

REPORT INFORMATION
  Report Type: Spontaneous
  Country: BR (occurrence: BR)
  Receive Date: 20180925
  Receipt Date: 20180925
  Transmission Date: 20181010
  Serious: Yes (Other)
  Sender: FDA-Public Use
  Company Number: BR-BAYER-2018-175108

PATIENT
  Age: 33 Year
  Sex: Female

DRUGS (2)
  1. MIRENA [Suspect]
     Active Substance: LEVONORGESTREL
     Indication: PELVIC PAIN
     Dosage: 20 MCG/24HR, CONT
     Route: 015
     Dates: start: 2006, end: 2011
  2. MIRENA [Suspect]
     Active Substance: LEVONORGESTREL
     Indication: ENDOMETRIOSIS

REACTIONS (5)
  - Large intestinal stenosis [None]
  - Off label use of device [None]
  - Dyschezia [None]
  - Drug ineffective for unapproved indication [None]
  - Device use issue [None]

NARRATIVE: CASE EVENT DATE: 2006
